FAERS Safety Report 19761358 (Version 1)
Quarter: 2021Q3

REPORT INFORMATION
  Report Type: Spontaneous
  Country: CN (occurrence: CN)
  Receive Date: 20210830
  Receipt Date: 20210830
  Transmission Date: 20211014
  Serious: Yes (Other)
  Sender: FDA-Public Use
  Company Number: CN-ROCHE-2897339

PATIENT
  Age: 51 Year
  Sex: Female

DRUGS (21)
  1. XELODA [Suspect]
     Active Substance: CAPECITABINE
     Dosage: 1.5G IN THE MORNING, 2.0G IN THE EVENING
     Route: 048
     Dates: start: 20191216, end: 20200326
  2. XELODA [Suspect]
     Active Substance: CAPECITABINE
     Route: 048
     Dates: start: 2020
  3. VINORELBINE [Concomitant]
     Active Substance: VINORELBINE TARTRATE
     Indication: BREAST CANCER
     Dosage: 10?JAN?2019 TO 30?MAY?2019
     Route: 041
  4. PYROTINIB [Concomitant]
     Active Substance: PYROTINIB
     Route: 048
     Dates: start: 2020
  5. DOCETAXEL. [Concomitant]
     Active Substance: DOCETAXEL
     Indication: BREAST CANCER
     Dosage: 05?MAY?2017, 27?MAY?2017, 16?JUN?2017 TO 08?JUL?2017
     Route: 041
  6. PERTUZUMAB. [Suspect]
     Active Substance: PERTUZUMAB
     Dosage: FIRST DOSE 840MG, THEN 420MG
     Route: 041
  7. XELODA [Suspect]
     Active Substance: CAPECITABINE
     Indication: BREAST CANCER
     Dosage: 1.5G IN THE MORNING, 2.0G IN THE EVENING
     Route: 048
     Dates: start: 20190110, end: 20190530
  8. TRASTUZUMAB. [Suspect]
     Active Substance: TRASTUZUMAB
     Indication: BREAST CANCER
     Dosage: 27?MAY?2017, 520MG; 16?JUN?2017 TO 08?JUL?2017, 390MG
     Route: 041
     Dates: start: 20170527
  9. XELODA [Suspect]
     Active Substance: CAPECITABINE
     Dosage: 1.5G IN THE MORNING, 2.0G IN THE EVENING
     Route: 048
     Dates: start: 20190730, end: 20191126
  10. PIRARUBICIN [Concomitant]
     Active Substance: PIRARUBICIN
     Indication: BREAST CANCER
     Dosage: 09?FEB?2017 TO 14?APR?2017
  11. FLUOROURACIL. [Concomitant]
     Active Substance: FLUOROURACIL
     Indication: BREAST CANCER
     Dosage: 09?FEB?2017 TO 14?APR?2017
     Route: 041
  12. PYROTINIB [Concomitant]
     Active Substance: PYROTINIB
     Indication: BREAST CANCER
     Dosage: 30?MAY?2019, 08?JUL?2020
     Route: 048
  13. PACLITAXEL. [Concomitant]
     Active Substance: PACLITAXEL
     Indication: BREAST CANCER
     Dosage: 16?DEC?2019 TO 26?MAR?2019; 27?MAR?2020 TO 28?MAY?2020
  14. TRASTUZUMAB. [Suspect]
     Active Substance: TRASTUZUMAB
     Dosage: 480MG FIRST DOSE, THEN 360MG
     Route: 041
     Dates: start: 20190730, end: 20191126
  15. TRASTUZUMAB. [Suspect]
     Active Substance: TRASTUZUMAB
     Dosage: FIRST DOSE 420MG, THEN 330MG
     Route: 041
  16. LAPATINIB [Concomitant]
     Active Substance: LAPATINIB
     Indication: BREAST CANCER
     Dosage: 30?JUL?2019 TO 26?NOV?2019
  17. KADCYLA [Suspect]
     Active Substance: ADO-TRASTUZUMAB EMTANSINE
     Indication: BREAST CANCER
     Route: 065
     Dates: start: 20200708
  18. TEMOZOLOMIDE. [Concomitant]
     Active Substance: TEMOZOLOMIDE
     Indication: BREAST CANCER
     Dates: start: 20201103
  19. TRASTUZUMAB. [Suspect]
     Active Substance: TRASTUZUMAB
     Dosage: 16?DEC?2019 TO 26?MAR?2020, 27?MAR?2020 TO 28?MAY?2020
     Route: 041
     Dates: start: 20191216
  20. PERTUZUMAB. [Suspect]
     Active Substance: PERTUZUMAB
     Indication: BREAST CANCER
     Dosage: 16?DEC?2019 TO 26?MAR?2020 840MG, 420MG, 27?MAR?2020 TO 28?MAY?2020, 420MG Q21D
     Route: 041
     Dates: start: 20191216
  21. CYCLOPHOSPHAMIDE. [Concomitant]
     Active Substance: CYCLOPHOSPHAMIDE
     Indication: BREAST CANCER
     Dosage: 09?FEB?2017 TO 14?APR?2017

REACTIONS (4)
  - General physical health deterioration [Unknown]
  - Drug resistance [Unknown]
  - Palmar-plantar erythrodysaesthesia syndrome [Unknown]
  - Myelosuppression [Unknown]
